FAERS Safety Report 18303391 (Version 3)
Quarter: 2020Q4

REPORT INFORMATION
  Report Type: Report from Study
  Country: US (occurrence: US)
  Receive Date: 20200923
  Receipt Date: 20201119
  Transmission Date: 20210113
  Serious: Yes (Hospitalization)
  Sender: FDA-Public Use
  Company Number: US-JNJFOC-20200927074

PATIENT
  Age: 24 Year
  Sex: Female
  Weight: 40.41 kg

DRUGS (2)
  1. INFLIXIMAB, RECOMBINANT [Suspect]
     Active Substance: INFLIXIMAB
     Indication: INFLAMMATORY BOWEL DISEASE
     Route: 042
     Dates: start: 20110316, end: 20120618
  2. STELARA [Concomitant]
     Active Substance: USTEKINUMAB

REACTIONS (2)
  - Colitis ulcerative [Recovered/Resolved]
  - Interstitial lung disease [Recovered/Resolved]

NARRATIVE: CASE EVENT DATE: 202001
